FAERS Safety Report 20109633 (Version 1)
Quarter: 2021Q4

REPORT INFORMATION
  Report Type: Spontaneous
  Country: BR (occurrence: BR)
  Receive Date: 20211124
  Receipt Date: 20211124
  Transmission Date: 20220303
  Serious: Yes (Other)
  Sender: FDA-Public Use
  Company Number: BR-PFIZER INC-202101593854

PATIENT
  Sex: Female

DRUGS (1)
  1. PRISTIQ EXTENDED-RELEASE [Suspect]
     Active Substance: DESVENLAFAXINE SUCCINATE
     Dosage: 10 DAYS EVERY OTHER DAY AND FOR 3 DAYS IN A ROW
     Dates: start: 202111, end: 20211115

REACTIONS (5)
  - Thrombosis [Recovered/Resolved]
  - Disease recurrence [Recovered/Resolved]
  - Insomnia [Unknown]
  - Dizziness [Unknown]
  - Withdrawal syndrome [Unknown]

NARRATIVE: CASE EVENT DATE: 20211101
